FAERS Safety Report 4849924-1 (Version None)
Quarter: 2005Q4

REPORT INFORMATION
  Report Type: 
  Country: None (occurrence: None)
  Receive Date: 20051115
  Receipt Date: 20050728
  Transmission Date: 20060501
  Serious: Yes (Other)
  Sender: FDA-Public Use
  Company Number: 412398

PATIENT
  Age: 50 Year
  Sex: Male

DRUGS (2)
  1. PEGASYS [Suspect]
     Indication: HEPATITIS C VIRUS
     Dosage: 180 MCG 1 PER WEEK SUBCUTANEOUS
     Route: 058
     Dates: start: 20050718, end: 20050721
  2. COPEGUS [Suspect]
     Indication: HEPATITIS C VIRUS
     Dosage: 400 MG 2 PER DAY ORAL
     Route: 048
     Dates: start: 20050718, end: 20050721

REACTIONS (11)
  - ADVERSE EVENT [None]
  - BLOOD PRESSURE INCREASED [None]
  - BODY TEMPERATURE FLUCTUATION [None]
  - FEELING HOT [None]
  - HOT FLUSH [None]
  - HYPERSENSITIVITY [None]
  - INJECTION SITE IRRITATION [None]
  - PYREXIA [None]
  - RASH [None]
  - SWOLLEN TONGUE [None]
  - VISION BLURRED [None]
